FAERS Safety Report 5329725-0 (Version None)
Quarter: 2007Q2

REPORT INFORMATION
  Report Type: 
  Country: None (occurrence: None)
  Receive Date: 20070515
  Receipt Date: 20070429
  Transmission Date: 20071010
  Serious: Yes (Life-Threatening, Hospitalization)
  Sender: FDA-Public Use
  Company Number: 8023758

PATIENT
  Age: 62 Year
  Sex: Female

DRUGS (3)
  1. KEPPRA [Suspect]
     Indication: EPILEPSY
     Dosage: 250 MG 2/D PO
     Route: 048
     Dates: start: 20070301, end: 20070401
  2. KEPPRA [Suspect]
     Indication: EPILEPSY
     Dosage: NAS
     Route: 045
     Dates: start: 20070401, end: 20070401
  3. LAMICTAL [Concomitant]

REACTIONS (9)
  - CATATONIA [None]
  - DEPRESSION [None]
  - HEART INJURY [None]
  - INJURY [None]
  - LIVER INJURY [None]
  - LUMBAR VERTEBRAL FRACTURE [None]
  - LUNG INJURY [None]
  - MENTAL DISORDER [None]
  - SUICIDE ATTEMPT [None]
